FAERS Safety Report 6006593-5 (Version None)
Quarter: 2008Q4

REPORT INFORMATION
  Report Type: 
  Country: None (occurrence: None)
  Receive Date: 20081217
  Receipt Date: 20081212
  Transmission Date: 20090506
  Serious: Yes (Hospitalization, Other)
  Sender: FDA-Public Use
  Company Number: US-BRISTOL-MYERS SQUIBB COMPANY-14442396

PATIENT
  Sex: Male
  Weight: 5 kg

DRUGS (2)
  1. CHOLESTYRAMINE [Suspect]
     Indication: HEPATITIS NEONATAL
     Dosage: 20 TO 24 GM OF THE CHOLESTYRAMINE RESIN DAILY IN 1000 TO 1200 ML OF PORTAGEN PRODUCTS.
  2. PORTAGEN [Suspect]
     Indication: HEPATITIS NEONATAL
     Dosage: 1 DOSAGE FORM = 1000-1200ML.

REACTIONS (6)
  - ACIDOSIS HYPERCHLORAEMIC [None]
  - DIARRHOEA [None]
  - HYPERNATRAEMIA [None]
  - MEDICATION ERROR [None]
  - PYREXIA [None]
  - VOMITING [None]
